FAERS Safety Report 10252977 (Version 1)
Quarter: 2014Q2

REPORT INFORMATION
  Report Type: Spontaneous
  Country: US (occurrence: None)
  Receive Date: 20140618
  Receipt Date: 20140618
  Transmission Date: 20141212
  Serious: No
  Sender: FDA-Public Use
  Company Number: None

PATIENT
  Age: 77 Year
  Sex: Female
  Weight: 55.79 kg

DRUGS (8)
  1. PROLIA INJECTION AMGEN [Suspect]
     Indication: OSTEOPOROSIS
     Dosage: TWICE A YEAR?INJECTION?
     Route: 042
  2. LISINOPRIL [Concomitant]
  3. LEVOTHYROXIN [Concomitant]
  4. COMBIGAN [Concomitant]
  5. LUMIGAN [Concomitant]
  6. CLTRATE [Concomitant]
  7. ADVIL [Concomitant]
  8. VITAMIN D + B6 [Concomitant]

REACTIONS (5)
  - Otorrhoea [None]
  - Middle ear effusion [None]
  - Tinnitus [None]
  - Deafness [None]
  - Ear pain [None]
